FAERS Safety Report 12728831 (Version 2)
Quarter: 2016Q3

REPORT INFORMATION
  Report Type: Report from Study
  Country: JP (occurrence: JP)
  Receive Date: 20160909
  Receipt Date: 20160912
  Transmission Date: 20161109
  Serious: Yes (Other)
  Sender: FDA-Public Use
  Company Number: JP-VIFOR (INTERNATIONAL) INC.-VIT-2016-05289

PATIENT
  Age: 73 Year
  Sex: Male

DRUGS (15)
  1. KIKLIN [Concomitant]
     Active Substance: BIXALOMER
     Indication: HYPERPHOSPHATAEMIA
     Route: 048
  2. REZALTAS [Concomitant]
     Active Substance: AZELNIDIPINE\OLMESARTAN MEDOXOMIL
     Dosage: 1DOSAGE FORM, 20MG/16MG
     Route: 048
  3. ROCALTROL [Concomitant]
     Active Substance: CALCITRIOL
     Route: 048
  4. NESP [Concomitant]
     Active Substance: DARBEPOETIN ALFA
     Route: 042
     Dates: start: 20160624
  5. VELPHORO [Suspect]
     Active Substance: FERRIC OXYHYDROXIDE
     Indication: HYPERPHOSPHATAEMIA
     Route: 048
     Dates: start: 20160503, end: 20160606
  6. ARTIST [Concomitant]
     Active Substance: CARVEDILOL
     Route: 048
  7. CARDENALIN [Concomitant]
     Active Substance: DOXAZOSIN MESYLATE
     Route: 048
  8. BASEN [Concomitant]
     Active Substance: VOGLIBOSE
     Route: 048
  9. LIVALO [Concomitant]
     Active Substance: PITAVASTATIN CALCIUM
     Route: 048
  10. AMLODIN [Concomitant]
     Active Substance: AMLODIPINE BESYLATE
     Route: 048
  11. VELPHORO [Suspect]
     Active Substance: FERRIC OXYHYDROXIDE
     Indication: CHRONIC KIDNEY DISEASE
     Route: 048
     Dates: start: 20160607
  12. GASTER [Concomitant]
     Active Substance: FAMOTIDINE
     Route: 048
  13. DIOVAN [Concomitant]
     Active Substance: VALSARTAN
     Route: 048
  14. NESP [Concomitant]
     Active Substance: DARBEPOETIN ALFA
     Route: 042
     Dates: end: 20160617
  15. MIRCERA [Concomitant]
     Active Substance: METHOXY POLYETHYLENE GLYCOL-EPOETIN BETA
     Route: 042
     Dates: start: 20160715

REACTIONS (3)
  - Serum ferritin increased [Not Recovered/Not Resolved]
  - Faeces soft [Recovering/Resolving]
  - Loss of consciousness [Recovered/Resolved]

NARRATIVE: CASE EVENT DATE: 20160523
